FAERS Safety Report 24453178 (Version 2)
Quarter: 2024Q4

REPORT INFORMATION
  Report Type: Report from Study
  Country: US (occurrence: US)
  Receive Date: 20241017
  Receipt Date: 20241018
  Transmission Date: 20250115
  Serious: No
  Sender: ROCHE
  Company Number: US-ROCHE-3109768

PATIENT
  Age: 48 Year
  Sex: Male
  Weight: 72.0 kg

DRUGS (8)
  1. RITUXAN [Suspect]
     Active Substance: RITUXIMAB
     Indication: Pemphigus
     Dosage: INFUSE 1000MG ON DAY 1 AND DAY 15 PRN?PATIENT HAD TREATMENT ON 12/JAN/2022 AND 24/JAN/2022 AND TOLER
     Route: 042
  2. CYCLOSPORINE [Concomitant]
     Active Substance: CYCLOSPORINE
  3. METFORMIN [Concomitant]
     Active Substance: METFORMIN HYDROCHLORIDE
  4. PREDNISONE [Concomitant]
     Active Substance: PREDNISONE
  5. ROSUVASTATIN [Concomitant]
     Active Substance: ROSUVASTATIN
  6. TYLENOL [Concomitant]
     Active Substance: ACETAMINOPHEN
  7. NOVOLOG [Concomitant]
     Active Substance: INSULIN ASPART
  8. FLUOCINONIDE [Concomitant]
     Active Substance: FLUOCINONIDE

REACTIONS (3)
  - Off label use [Unknown]
  - Odynophagia [Unknown]
  - Haemoptysis [Unknown]
